FAERS Safety Report 18093128 (Version 1)
Quarter: 2020Q3

REPORT INFORMATION
  Report Type: Spontaneous
  Country: US (occurrence: US)
  Receive Date: 20200730
  Receipt Date: 20200730
  Transmission Date: 20201103
  Serious: Yes (Other)
  Sender: FDA-Public Use
  Company Number: None

PATIENT

DRUGS (1)
  1. SCENT THEORY ? KEEP IT CLEAN ? PURE CLEAN ANTI?BACTERIAL HAND SANITIZER [Suspect]
     Active Substance: ALCOHOL

REACTIONS (2)
  - Nausea [None]
  - Headache [None]
